FAERS Safety Report 7685894-9 (Version None)
Quarter: 2011Q3

REPORT INFORMATION
  Report Type: 
  Country: None (occurrence: None)
  Receive Date: 20110816
  Receipt Date: 20110815
  Transmission Date: 20111222
  Serious: Yes (Other)
  Sender: FDA-Public Use
  Company Number: US-ROCHE-796773

PATIENT

DRUGS (2)
  1. ACCUTANE [Suspect]
     Route: 065
     Dates: start: 19900701, end: 19901101
  2. ACCUTANE [Suspect]
     Route: 065
     Dates: start: 19960701, end: 19961101

REACTIONS (1)
  - IRRITABLE BOWEL SYNDROME [None]
